FAERS Safety Report 20153243 (Version 1)
Quarter: 2021Q4

REPORT INFORMATION
  Report Type: Spontaneous
  Country: FR (occurrence: FR)
  Receive Date: 20211206
  Receipt Date: 20211206
  Transmission Date: 20220304
  Serious: Yes (Hospitalization)
  Sender: FDA-Public Use
  Company Number: FR-ELI_LILLY_AND_COMPANY-FR202112001084

PATIENT
  Sex: Female

DRUGS (2)
  1. HUMALOG [Suspect]
     Active Substance: INSULIN LISPRO
     Indication: Diabetes mellitus
     Dosage: UNK, UNKNOWN
     Route: 065
  2. LEVEMIR [Suspect]
     Active Substance: INSULIN DETEMIR
     Indication: Neoplasm malignant
     Dosage: UNK, UNKNOWN
     Route: 065

REACTIONS (5)
  - Fracture [Unknown]
  - Fall [Unknown]
  - Bone disorder [Unknown]
  - Mobility decreased [Unknown]
  - Injection site bruising [Unknown]
